FAERS Safety Report 14635829 (Version 1)
Quarter: 2018Q1

REPORT INFORMATION
  Report Type: Spontaneous
  Country: DK (occurrence: DK)
  Receive Date: 20180314
  Receipt Date: 20180314
  Transmission Date: 20180509
  Serious: Yes (Congenital Anomaly)
  Sender: FDA-Public Use
  Company Number: DK-AUROBINDO-AUR-APL-2018-012398

PATIENT
  Age: 3 Day
  Sex: Male

DRUGS (2)
  1. SERTRALINE FILM-COATED TABLETS 100MG [Suspect]
     Active Substance: SERTRALINE HYDROCHLORIDE
     Indication: ANXIETY
     Dosage: 1 DOSAGE FORM, ONCE A DAY
     Route: 064
     Dates: start: 20170306
  2. CYMBALTA [Concomitant]
     Active Substance: DULOXETINE HYDROCHLORIDE
     Indication: ANXIETY
     Dosage: 60 MILLIGRAM, USED AS A SIMULTANEOUS DRUG BECAUSE IT HAS TAKEN THE FIRST 4-5 WEEKS OF
     Route: 064
     Dates: start: 20150721, end: 20170303

REACTIONS (2)
  - Foetal exposure during pregnancy [Recovered/Resolved]
  - Limb reduction defect [Not Recovered/Not Resolved]
